FAERS Safety Report 16376430 (Version 1)
Quarter: 2019Q2

REPORT INFORMATION
  Report Type: Spontaneous
  Country: US (occurrence: US)
  Receive Date: 20190531
  Receipt Date: 20190531
  Transmission Date: 20190711
  Serious: Yes (Hospitalization)
  Sender: FDA-Public Use
  Company Number: US-APOTEX-2019AP014983

PATIENT
  Age: 87 Year
  Sex: Female

DRUGS (3)
  1. AMIODARONE HCL INJECTION [Suspect]
     Active Substance: AMIODARONE HYDROCHLORIDE
     Indication: ATRIAL FIBRILLATION
     Dosage: PARTIALLY LOADED WITH AMIODARONE (5 G).
     Route: 042
  2. WARFARIN [Concomitant]
     Active Substance: WARFARIN
     Indication: EMBOLISM
     Dosage: UNK
     Route: 065
  3. WARFARIN [Concomitant]
     Active Substance: WARFARIN
     Indication: PROPHYLAXIS

REACTIONS (2)
  - Dermatitis allergic [Unknown]
  - Drug ineffective [Unknown]
